FAERS Safety Report 7526225-4 (Version None)
Quarter: 2011Q2

REPORT INFORMATION
  Report Type: 
  Country: None (occurrence: None)
  Receive Date: 20110606
  Receipt Date: 20110520
  Transmission Date: 20111010
  Serious: Yes (Hospitalization, Other)
  Sender: FDA-Public Use
  Company Number: PHHY2011US47657

PATIENT
  Age: 85 Year
  Sex: Female

DRUGS (8)
  1. MICARDIS [Concomitant]
  2. NAMENDA [Concomitant]
  3. NORVASC [Suspect]
     Dates: end: 20110511
  4. FUROSEMIDE [Suspect]
     Dosage: 40 MG, UNK
     Dates: end: 20110511
  5. METOPROLOL TARTRATE [Concomitant]
  6. EXELON [Concomitant]
  7. DIOVAN [Suspect]
  8. SEROQUEL [Suspect]
     Indication: DEMENTIA WITH LEWY BODIES

REACTIONS (7)
  - DEMENTIA WITH LEWY BODIES [None]
  - TREMOR [None]
  - JOINT SWELLING [None]
  - DEMENTIA [None]
  - FEELING ABNORMAL [None]
  - FLUID RETENTION [None]
  - WEIGHT INCREASED [None]
